FAERS Safety Report 4642383-3 (Version None)
Quarter: 2005Q2

REPORT INFORMATION
  Report Type: 
  Country: None (occurrence: None)
  Receive Date: 20050422
  Receipt Date: 20050308
  Transmission Date: 20051028
  Serious: Yes (Other)
  Sender: FDA-Public Use
  Company Number: NL-GLAXOSMITHKLINE-B0374849A

PATIENT
  Age: 44 Year
  Sex: Female

DRUGS (4)
  1. SUMATRIPTAN SUCCINATE [Suspect]
     Indication: MIGRAINE
     Dosage: 100MG PER DAY
     Route: 065
     Dates: start: 20010321
  2. EFFEXOR [Concomitant]
     Dates: start: 20020307
  3. ALPRAZOLAM [Concomitant]
     Dosage: .5MG PER DAY
     Dates: start: 20040908
  4. CALCIUM CARBONATE [Concomitant]
     Dates: start: 20050103

REACTIONS (2)
  - EYE HAEMORRHAGE [None]
  - RETINAL VASCULAR DISORDER [None]
